FAERS Safety Report 4676467-0 (Version None)
Quarter: 2005Q2

REPORT INFORMATION
  Report Type: 
  Country: None (occurrence: None)
  Receive Date: 20050525
  Receipt Date: 20050509
  Transmission Date: 20051028
  Serious: Yes (Other)
  Sender: FDA-Public Use
  Company Number: 2005071955

PATIENT
  Age: 41 Year
  Sex: Male

DRUGS (3)
  1. NEURONTIN [Suspect]
     Indication: NEUROPATHIC PAIN
     Dosage: 400 MG (200 MG, 1 IN 2 D), ORAL
     Route: 048
  2. NAXEN (NAPROXEN) [Concomitant]
  3. MUSCLE RELAXANTS [Concomitant]

REACTIONS (4)
  - HYPERTENSION [None]
  - RETINAL DISORDER [None]
  - VISION BLURRED [None]
  - VISUAL DISTURBANCE [None]
